FAERS Safety Report 6906298-X (Version None)
Quarter: 2010Q3

REPORT INFORMATION
  Report Type: 
  Country: None (occurrence: None)
  Receive Date: 20100804
  Receipt Date: 20100728
  Transmission Date: 20110219
  Serious: Yes (Hospitalization, Other)
  Sender: FDA-Public Use
  Company Number: GB-ABBOTT-10P-167-0660033-00

PATIENT
  Age: 12 Month
  Sex: Male

DRUGS (1)
  1. ERYTHROMYCIN [Suspect]
     Indication: SEPSIS
     Route: 042

REACTIONS (2)
  - INFUSION SITE EXTRAVASATION [None]
  - NECROSIS [None]
